FAERS Safety Report 15315457 (Version 1)
Quarter: 2018Q3

REPORT INFORMATION
  Report Type: Spontaneous
  Country: US (occurrence: US)
  Receive Date: 20180815
  Receipt Date: 20180815
  Transmission Date: 20181010
  Serious: Yes (Other)
  Sender: FDA-Public Use
  Company Number: None

PATIENT
  Age: 62 Year
  Sex: Male
  Weight: 99.45 kg

DRUGS (9)
  1. ATIVAN [Concomitant]
     Active Substance: LORAZEPAM
  2. CRESTOR [Concomitant]
     Active Substance: ROSUVASTATIN CALCIUM
  3. LOFIBRA [Concomitant]
     Active Substance: FENOFIBRATE
  4. ZOLEDRONIC ACID. [Suspect]
     Active Substance: ZOLEDRONIC ACID
     Indication: OSTEOPOROSIS
     Dosage: ?          OTHER FREQUENCY:ANNUALLY;?
     Route: 042
     Dates: start: 20180727, end: 20180727
  5. EFFEXOR [Concomitant]
     Active Substance: VENLAFAXINE HYDROCHLORIDE
  6. NEURONTIN [Concomitant]
     Active Substance: GABAPENTIN
  7. VIAGRA [Concomitant]
     Active Substance: SILDENAFIL CITRATE
  8. LUPRON [Concomitant]
     Active Substance: LEUPROLIDE ACETATE
  9. NORCO [Concomitant]
     Active Substance: ACETAMINOPHEN\HYDROCODONE BITARTRATE

REACTIONS (5)
  - Myalgia [None]
  - Uveitis [None]
  - Bone pain [None]
  - Flank pain [None]
  - Haematuria [None]

NARRATIVE: CASE EVENT DATE: 20180802
